FAERS Safety Report 13184967 (Version 2)
Quarter: 2017Q1

REPORT INFORMATION
  Report Type: Report from Study
  Country: US (occurrence: US)
  Receive Date: 20170203
  Receipt Date: 20170303
  Transmission Date: 20170428
  Serious: Yes (Other)
  Sender: FDA-Public Use
  Company Number: US-JNJFOC-20170202723

PATIENT
  Sex: Female

DRUGS (11)
  1. EVISTA [Concomitant]
     Active Substance: RALOXIFENE HYDROCHLORIDE
  2. TEA, GREEN [Concomitant]
     Active Substance: GREEN TEA LEAF
  3. ASPIRIN. [Concomitant]
     Active Substance: ASPIRIN
  4. IMBRUVICA [Suspect]
     Active Substance: IBRUTINIB
     Indication: CHRONIC LYMPHOCYTIC LEUKAEMIA
     Route: 048
     Dates: start: 20161210
  5. FISH OIL [Concomitant]
     Active Substance: FISH OIL
  6. HYDROCHLOROTHIAZIDE. [Concomitant]
     Active Substance: HYDROCHLOROTHIAZIDE
  7. TIMOPTIC [Concomitant]
     Active Substance: TIMOLOL MALEATE
  8. LOSARTAN. [Concomitant]
     Active Substance: LOSARTAN
  9. TOPROL XL [Concomitant]
     Active Substance: METOPROLOL SUCCINATE
  10. ROPINIROLE. [Concomitant]
     Active Substance: ROPINIROLE
  11. PRAVASTATIN. [Concomitant]
     Active Substance: PRAVASTATIN

REACTIONS (3)
  - Lung disorder [Unknown]
  - Urinary tract infection [Unknown]
  - Influenza [Recovering/Resolving]
